FAERS Safety Report 9171918 (Version 1)
Quarter: 2013Q1

REPORT INFORMATION
  Report Type: Spontaneous
  Country: US (occurrence: None)
  Receive Date: 20130313
  Receipt Date: 20130313
  Transmission Date: 20140127
  Serious: No
  Sender: FDA-Public Use
  Company Number: AEUSA201200013

PATIENT
  Age: 70 Year
  Sex: Female
  Weight: 127.01 kg

DRUGS (1)
  1. PROLASTIN-C [Suspect]
     Indication: ALPHA-1 ANTI-TRYPSIN DEFICIENCY
     Route: 042
     Dates: start: 20111220, end: 20120110

REACTIONS (3)
  - Faeces discoloured [None]
  - Urine odour abnormal [None]
  - Upper gastrointestinal haemorrhage [None]
